FAERS Safety Report 15377673 (Version 1)
Quarter: 2018Q3

REPORT INFORMATION
  Report Type: Spontaneous
  Country: US (occurrence: US)
  Receive Date: 20180906
  Receipt Date: 20180906
  Transmission Date: 20181010
  Serious: Yes (Hospitalization, Disabling)
  Sender: FDA-Public Use
  Company Number: None

PATIENT
  Age: 81 Year
  Sex: Male
  Weight: 108.86 kg

DRUGS (16)
  1. ALPHAGAN P [Concomitant]
     Active Substance: BRIMONIDINE TARTRATE
  2. METOPROLOL SUCCINATE. [Concomitant]
     Active Substance: METOPROLOL SUCCINATE
  3. EYE DROPS [Concomitant]
     Active Substance: UNSPECIFIED INGREDIENT
  4. SILVADENE CREAM 1% (SILVER SULFADIAZINE) [Concomitant]
  5. ECONAZOLE [Concomitant]
     Active Substance: ECONAZOLE
  6. MAGNESIUM [Concomitant]
     Active Substance: MAGNESIUM
  7. ZONTIVITY [Suspect]
     Active Substance: VORAPAXAR SULFATE
     Indication: ANTICOAGULANT THERAPY
     Dosage: ?          QUANTITY:1 DF DOSAGE FORM;?
     Route: 048
     Dates: start: 201611, end: 20180626
  8. ATORVASTATIN CALCIUM. [Concomitant]
     Active Substance: ATORVASTATIN CALCIUM
  9. ALFUZOSIN HCL ER [Concomitant]
     Active Substance: ALFUZOSIN HYDROCHLORIDE
  10. NOVOLOG MIX 70/30 [Concomitant]
     Active Substance: INSULIN ASPART
  11. COSOPT [Concomitant]
     Active Substance: DORZOLAMIDE HYDROCHLORIDE\TIMOLOL MALEATE
  12. LOSARTAN POTASSIUM. [Concomitant]
     Active Substance: LOSARTAN POTASSIUM
  13. VITAMIN D3 [Concomitant]
     Active Substance: CHOLECALCIFEROL
  14. FOLIC ACID. [Concomitant]
     Active Substance: FOLIC ACID
  15. ASPIRIN EC [Concomitant]
     Active Substance: ASPIRIN
  16. ALLOPURINOL. [Concomitant]
     Active Substance: ALLOPURINOL

REACTIONS (7)
  - Muscular weakness [None]
  - Gait inability [None]
  - Contusion [None]
  - Dysstasia [None]
  - Pain in extremity [None]
  - Haemoglobin decreased [None]
  - Blood pressure decreased [None]
